FAERS Safety Report 11518644 (Version 2)
Quarter: 2016Q3

REPORT INFORMATION
  Report Type: Spontaneous
  Country: US (occurrence: US)
  Receive Date: 20150917
  Receipt Date: 20160921
  Transmission Date: 20161109
  Serious: No
  Sender: FDA-Public Use
  Company Number: US-BAUSCH-BL-2014-005490

PATIENT
  Age: 64 Year
  Sex: Female
  Weight: 59.93 kg

DRUGS (4)
  1. ORACEA [Concomitant]
     Active Substance: DOXYCYCLINE
     Indication: ROSACEA
     Dates: start: 2010
  2. FLUOROURACIL CREAM 5 % [Suspect]
     Active Substance: FLUOROURACIL
     Indication: ACTINIC KERATOSIS
     Route: 061
     Dates: start: 20140309, end: 20140509
  3. RETIN-A [Concomitant]
     Active Substance: TRETINOIN
     Indication: ACNE
     Dates: start: 2000
  4. FLUOROURACIL CREAM 5 % [Suspect]
     Active Substance: FLUOROURACIL
     Indication: SKIN LESION

REACTIONS (1)
  - Madarosis [Recovered/Resolved]

NARRATIVE: CASE EVENT DATE: 201409
